FAERS Safety Report 7806473-6 (Version None)
Quarter: 2011Q4

REPORT INFORMATION
  Report Type: 
  Country: None (occurrence: None)
  Receive Date: 20111007
  Receipt Date: 20111007
  Transmission Date: 20120403
  Serious: Yes (Hospitalization)
  Sender: FDA-Public Use
  Company Number: None

PATIENT
  Age: 45 Year
  Sex: Male
  Weight: 65.7 kg

DRUGS (15)
  1. DECITABINE [Suspect]
     Indication: COLORECTAL CANCER METASTATIC
     Dosage: DECITABINE
     Dates: start: 20110902
  2. DECITABINE [Suspect]
     Indication: COLORECTAL CANCER METASTATIC
     Dosage: DECITABINE
     Dates: start: 20110729
  3. DECITABINE [Suspect]
     Indication: COLORECTAL CANCER METASTATIC
     Dosage: DECITABINE
     Dates: start: 20110916
  4. DECITABINE [Suspect]
     Indication: COLORECTAL CANCER METASTATIC
     Dosage: DECITABINE
     Dates: start: 20110928
  5. CYMBALTA [Concomitant]
  6. ACTIQ [Concomitant]
  7. GABAPENTIN [Concomitant]
  8. PANITUMUMAB 6MG/KG AMGEN PHARMACEUTICALS [Suspect]
     Indication: COLORECTAL CANCER METASTATIC
     Dosage: PANITUMUMAB
     Dates: start: 20110826
  9. PANITUMUMAB 6MG/KG AMGEN PHARMACEUTICALS [Suspect]
     Indication: COLORECTAL CANCER METASTATIC
     Dosage: PANITUMUMAB
     Dates: start: 20110923
  10. PANITUMUMAB 6MG/KG AMGEN PHARMACEUTICALS [Suspect]
     Indication: COLORECTAL CANCER METASTATIC
     Dosage: PANITUMUMAB
     Dates: start: 20110805
  11. PANITUMUMAB 6MG/KG AMGEN PHARMACEUTICALS [Suspect]
     Indication: COLORECTAL CANCER METASTATIC
     Dosage: PANITUMUMAB
     Dates: start: 20110909
  12. SENNA-S [Concomitant]
  13. AMBIEN [Concomitant]
  14. TRAZODONE HYDROCHLORIDE [Concomitant]
  15. RITALIN [Concomitant]

REACTIONS (8)
  - CONFUSIONAL STATE [None]
  - PYREXIA [None]
  - ANAEMIA [None]
  - OEDEMA PERIPHERAL [None]
  - INFECTION [None]
  - ELECTROLYTE IMBALANCE [None]
  - HYPOTENSION [None]
  - SYSTEMIC INFLAMMATORY RESPONSE SYNDROME [None]
